FAERS Safety Report 4946611-6 (Version None)
Quarter: 2006Q1

REPORT INFORMATION
  Report Type: 
  Country: None (occurrence: None)
  Receive Date: 20060317
  Receipt Date: 20060315
  Transmission Date: 20060701
  Serious: Yes (Hospitalization)
  Sender: FDA-Public Use
  Company Number: FR-GLAXOSMITHKLINE-B0416034A

PATIENT
  Age: 51 Year
  Sex: Female

DRUGS (1)
  1. AUGMENTIN '125' [Suspect]
     Route: 048
     Dates: end: 20060118

REACTIONS (2)
  - ANGIONEUROTIC OEDEMA [None]
  - DYSPNOEA [None]
